FAERS Safety Report 8850560 (Version 1)
Quarter: 2012Q4

REPORT INFORMATION
  Report Type: Report from Study
  Country: US (occurrence: US)
  Receive Date: 20121019
  Receipt Date: 20121019
  Transmission Date: 20130627
  Serious: Yes (Hospitalization)
  Sender: FDA-Public Use
  Company Number: US-ABBOTT-12P-163-0994645-00

PATIENT
  Age: 61 Year
  Sex: Female
  Weight: 113.5 kg

DRUGS (4)
  1. HUMIRA [Suspect]
     Indication: PSORIATIC ARTHROPATHY
     Dates: start: 2002
  2. LISINOPRIL [Concomitant]
     Indication: HYPERTENSION
  3. LIPITOR [Concomitant]
     Indication: BLOOD CHOLESTEROL INCREASED
  4. NEURONTIN [Concomitant]
     Indication: NEUROPATHY PERIPHERAL

REACTIONS (6)
  - Cervical spinal stenosis [Not Recovered/Not Resolved]
  - Pain [Recovered/Resolved]
  - Dyspnoea [Recovering/Resolving]
  - Neck injury [Recovered/Resolved]
  - Neck pain [Recovered/Resolved]
  - Hyperhidrosis [Recovered/Resolved]
